FAERS Safety Report 12737296 (Version 4)
Quarter: 2017Q1

REPORT INFORMATION
  Report Type: Report from Study
  Country: DE (occurrence: DE)
  Receive Date: 20160912
  Receipt Date: 20170117
  Transmission Date: 20170428
  Serious: Yes (Hospitalization)
  Sender: FDA-Public Use
  Company Number: DE-BIOGEN-2016BI00289831

PATIENT
  Age: 57 Year
  Sex: Female
  Weight: 83 kg

DRUGS (7)
  1. IBUPROFEN. [Concomitant]
     Active Substance: IBUPROFEN
     Indication: PAIN
     Route: 048
     Dates: start: 20070806
  2. PREDNISOLUT [Concomitant]
     Active Substance: PREDNISOLONE
     Indication: MULTIPLE SCLEROSIS RELAPSE
     Route: 042
     Dates: start: 20151117, end: 20151124
  3. PREDNISOLUT [Concomitant]
     Active Substance: PREDNISOLONE
     Route: 042
     Dates: start: 20160531, end: 20160604
  4. CYMBALTA [Concomitant]
     Active Substance: DULOXETINE HYDROCHLORIDE
     Indication: DEPRESSION
     Route: 048
     Dates: start: 20111202
  5. NOVAMINSULFON [Concomitant]
     Active Substance: METAMIZOLE
     Indication: PAIN
     Dosage: MAXIMUM 4 TABLETS A DAY
     Route: 048
     Dates: start: 20151217
  6. TYSABRI [Suspect]
     Active Substance: NATALIZUMAB
     Indication: MULTIPLE SCLEROSIS
     Route: 042
     Dates: start: 20081127, end: 20160907
  7. OPIPRAMOL [Concomitant]
     Active Substance: OPIPRAMOL
     Indication: DEPRESSION
     Route: 048
     Dates: start: 20151013

REACTIONS (2)
  - Myelitis [Recovered/Resolved with Sequelae]
  - Multiple sclerosis relapse [Recovered/Resolved with Sequelae]

NARRATIVE: CASE EVENT DATE: 20160906
